FAERS Safety Report 6134826-3 (Version None)
Quarter: 2009Q1

REPORT INFORMATION
  Report Type: 
  Country: None (occurrence: None)
  Receive Date: 20090327
  Receipt Date: 20090319
  Transmission Date: 20090719
  Serious: Yes (Other)
  Sender: FDA-Public Use
  Company Number: US-JNJFOC-20090305265

PATIENT
  Age: 56 Year
  Sex: Male

DRUGS (6)
  1. EXTRA STRENGTH TYLENOL [Suspect]
     Route: 048
  2. EXTRA STRENGTH TYLENOL [Suspect]
     Indication: HEADACHE
     Route: 048
  3. UNSPECIFIED CHOLESTEROL MEDICATION [Concomitant]
     Indication: BLOOD CHOLESTEROL INCREASED
  4. RISPERDAL [Concomitant]
     Indication: INSOMNIA
  5. UNSPECIFIED WATER PILL [Concomitant]
     Indication: FLUID RETENTION
  6. POTASSIUM CHLORIDE [Concomitant]
     Indication: MEDICAL DIET

REACTIONS (1)
  - PRODUCT CONTAMINATION [None]
